FAERS Safety Report 14937227 (Version 4)
Quarter: 2020Q4

REPORT INFORMATION
  Report Type: Report from Study
  Country: FR (occurrence: FR)
  Receive Date: 20180525
  Receipt Date: 20201104
  Transmission Date: 20210113
  Serious: Yes (Death, Other)
  Sender: FDA-Public Use
  Company Number: FR-JAZZ-2018-FR-007980

PATIENT

DRUGS (3)
  1. DEFITELIO [Suspect]
     Active Substance: DEFIBROTIDE SODIUM
     Indication: PROPHYLAXIS
     Dosage: 24.6 MILLIGRAM/KILOGRAM/DAY
     Route: 042
     Dates: start: 20150213, end: 20150227
  2. SERUM ALBUMIN HUMAN [Concomitant]
     Active Substance: ALBUMIN HUMAN
     Indication: VENOOCCLUSIVE LIVER DISEASE
  3. DEFITELIO [Suspect]
     Active Substance: DEFIBROTIDE SODIUM
     Indication: VENOOCCLUSIVE LIVER DISEASE

REACTIONS (6)
  - Acute myeloid leukaemia recurrent [Unknown]
  - Off label use [Unknown]
  - Venoocclusive liver disease [Recovered/Resolved]
  - Acute graft versus host disease [Unknown]
  - Prescribed underdose [Unknown]
  - Respiratory distress [Fatal]

NARRATIVE: CASE EVENT DATE: 20150213
